FAERS Safety Report 20679247 (Version 5)
Quarter: 2022Q2

REPORT INFORMATION
  Report Type: Report from Study
  Country: FR (occurrence: FR)
  Receive Date: 20220406
  Receipt Date: 20220526
  Transmission Date: 20220721
  Serious: Yes (Life-Threatening, Hospitalization, Other)
  Sender: FDA-Public Use
  Company Number: FR-GILEAD-2022-0575736

PATIENT
  Age: 67 Year
  Sex: Female
  Weight: 75 kg

DRUGS (19)
  1. SACITUZUMAB GOVITECAN [Suspect]
     Active Substance: SACITUZUMAB GOVITECAN
     Indication: Triple negative breast cancer
     Dosage: 10 MG/KG CYCLE 1 D1, D8
     Route: 042
     Dates: start: 20220309, end: 20220316
  2. COVID-19 VACCINE [Concomitant]
     Dosage: 2 DOSES
  3. RAMIPRIL [Concomitant]
     Active Substance: RAMIPRIL
  4. BISOPROLOL [Concomitant]
     Active Substance: BISOPROLOL
  5. APIDRA [Concomitant]
     Active Substance: INSULIN GLULISINE
  6. TRESIBA [Concomitant]
     Active Substance: INSULIN DEGLUDEC
  7. SEMAGLUTIDE [Concomitant]
     Active Substance: SEMAGLUTIDE
  8. DAPAGLIFLOZIN [Concomitant]
     Active Substance: DAPAGLIFLOZIN
  9. LANSOPRAZOLE [Concomitant]
     Active Substance: LANSOPRAZOLE
  10. FUROSEMIDE [Concomitant]
     Active Substance: FUROSEMIDE
  11. PREGABALIN [Concomitant]
     Active Substance: PREGABALIN
  12. LEVOTHYROXINE [Concomitant]
     Active Substance: LEVOTHYROXINE
  13. VENLAFAXINE [Concomitant]
     Active Substance: VENLAFAXINE HYDROCHLORIDE
  14. ALPRAZOLAM [Concomitant]
     Active Substance: ALPRAZOLAM
  15. CETIRIZINE [Concomitant]
     Active Substance: CETIRIZINE HYDROCHLORIDE
  16. BUDESONIDE [Concomitant]
     Active Substance: BUDESONIDE
  17. ALBUTEROL SULFATE [Concomitant]
     Active Substance: ALBUTEROL SULFATE
  18. CHOLECALCIFEROL [Concomitant]
     Active Substance: CHOLECALCIFEROL
  19. FILGRASTIM [Concomitant]
     Active Substance: FILGRASTIM
     Dosage: UNK
     Dates: start: 20220313

REACTIONS (5)
  - Malaise [Recovered/Resolved]
  - Pyrexia [Recovered/Resolved]
  - Sepsis [Recovered/Resolved]
  - Febrile bone marrow aplasia [Recovered/Resolved]
  - Septic shock [Recovered/Resolved]

NARRATIVE: CASE EVENT DATE: 20220323
